FAERS Safety Report 8806652 (Version 2)
Quarter: 2013Q2

REPORT INFORMATION
  Report Type: Report from Study
  Country: US (occurrence: US)
  Receive Date: 20120925
  Receipt Date: 20130605
  Transmission Date: 20140414
  Serious: Yes (Death, Hospitalization)
  Sender: FDA-Public Use
  Company Number: US-BRISTOL-MYERS SQUIBB COMPANY-15274749

PATIENT
  Age: 65 Year
  Sex: Male

DRUGS (41)
  1. IPILIMUMAB [Suspect]
     Indication: MALIGNANT MELANOMA
     Dosage: NO OF COURSES: 02
     Route: 042
     Dates: start: 20100805
  2. LEXAPRO [Suspect]
     Dates: start: 2009, end: 20100916
  3. DIOVAN HCT [Concomitant]
  4. ENABLEX [Concomitant]
     Dates: start: 2006
  5. FLOMAX [Concomitant]
     Dates: start: 2006
  6. ASPIRIN [Concomitant]
  7. COREG [Concomitant]
  8. LANOXIN [Concomitant]
  9. AMARYL [Concomitant]
  10. LASIX [Concomitant]
  11. ULTRAM [Concomitant]
  12. ZESTRIL [Concomitant]
  13. NEXIUM [Concomitant]
  14. K-DUR [Concomitant]
  15. LORTAB [Concomitant]
  16. OXY-IR [Concomitant]
  17. LIPITOR [Concomitant]
     Dates: start: 2009
  18. LOSEC [Concomitant]
     Dates: start: 2009
  19. GLYBURIDE [Concomitant]
     Dates: start: 2007
  20. FIBERCON [Concomitant]
     Dates: start: 2009
  21. COUMADIN [Concomitant]
     Dates: start: 20100903
  22. LEXAPRO [Concomitant]
     Dates: start: 2009, end: 20100916
  23. DURAGESIC [Concomitant]
     Dates: start: 20100805
  24. LORTAB [Concomitant]
     Dates: start: 20100805
  25. DIGOXIN [Concomitant]
     Dates: start: 2009
  26. TRAMADOL [Concomitant]
     Dosage: ER
     Dates: start: 2009
  27. CARVEDILOL [Concomitant]
  28. VALSARTAN + HCTZ [Concomitant]
  29. DARIFENACIN HYDROBROMIDE [Concomitant]
  30. TAMSULOSIN HCL [Concomitant]
  31. GLIMEPIRIDE [Concomitant]
  32. FUROSEMIDE [Concomitant]
  33. ESCITALOPRAM OXALATE [Concomitant]
  34. APAP [Concomitant]
     Dosage: 1DF=500 UNIT NOT GIVEN.
  35. HYDROCODONE [Concomitant]
     Dosage: 1DF=1DF=7.5 UNIT NOT GIVEN.
  36. ATORVASTATIN CALCIUM [Concomitant]
  37. LISINOPRIL [Concomitant]
  38. OXYCODONE [Concomitant]
  39. POTASSIUM [Concomitant]
  40. WARFARIN SODIUM [Concomitant]
     Dates: start: 20100913
  41. ESOMEPRAZOLE MAGNESIUM [Concomitant]

REACTIONS (3)
  - Sepsis [Fatal]
  - Deep vein thrombosis [Recovered/Resolved]
  - Hyponatraemia [Recovered/Resolved]
